FAERS Safety Report 7394168-5 (Version None)
Quarter: 2011Q1

REPORT INFORMATION
  Report Type: 
  Country: None (occurrence: None)
  Receive Date: 20110325
  Receipt Date: 20110317
  Transmission Date: 20110831
  Serious: Yes (Hospitalization)
  Sender: FDA-Public Use
  Company Number: 8049411

PATIENT
  Sex: Female
  Weight: 90.4 kg

DRUGS (10)
  1. METHOTREXATE [Concomitant]
  2. LEVOTHYROXINE SODIUM [Concomitant]
  3. SIMVASTATIN [Concomitant]
  4. ALISKIREN [Concomitant]
  5. CERTOLIZUMAB PEGOL [Suspect]
     Indication: RHEUMATOID ARTHRITIS
     Dosage: (400 MG 1X/2 WEEKS SUBCUTANEOUS) ; (200 MG 1X/2 WEEKS SUBCUTANEOUS)
     Route: 058
     Dates: start: 20081226, end: 20090101
  6. CERTOLIZUMAB PEGOL [Suspect]
     Indication: RHEUMATOID ARTHRITIS
     Dosage: (400 MG 1X/2 WEEKS SUBCUTANEOUS) ; (200 MG 1X/2 WEEKS SUBCUTANEOUS)
     Route: 058
     Dates: start: 20090101, end: 20090305
  7. CELEBREX [Concomitant]
  8. PREVACID [Concomitant]
  9. ATENOLOL [Concomitant]
  10. HYDROCHLOROTHIAZIDE [Concomitant]

REACTIONS (11)
  - PANCREATIC MASS [None]
  - ATRIAL FIBRILLATION [None]
  - ABDOMINAL PAIN [None]
  - HAEMOGLOBIN DECREASED [None]
  - HAEMATOCRIT DECREASED [None]
  - CARDIAC FAILURE CONGESTIVE [None]
  - WHITE BLOOD CELL COUNT DECREASED [None]
  - BLOOD PRESSURE SYSTOLIC DECREASED [None]
  - HYPOXIA [None]
  - PNEUMONIA [None]
  - FIBRIN D DIMER INCREASED [None]
